FAERS Safety Report 4922205-3 (Version None)
Quarter: 2006Q1

REPORT INFORMATION
  Report Type: 
  Country: None (occurrence: None)
  Receive Date: 20060224
  Receipt Date: 20051007
  Transmission Date: 20060701
  Serious: Yes (Hospitalization, Disabling)
  Sender: FDA-Public Use
  Company Number: US-MERCK-0510USA05702

PATIENT
  Age: 48 Year
  Sex: Female
  Weight: 85 kg

DRUGS (2)
  1. VIOXX [Suspect]
     Indication: PAIN
     Route: 048
  2. VIOXX [Suspect]
     Indication: SWELLING
     Route: 048

REACTIONS (6)
  - ADVERSE EVENT [None]
  - AMNESIA [None]
  - CEREBROVASCULAR ACCIDENT [None]
  - HEADACHE [None]
  - NAUSEA [None]
  - VOMITING [None]
